FAERS Safety Report 7595683-1 (Version None)
Quarter: 2011Q3

REPORT INFORMATION
  Report Type: 
  Country: None (occurrence: None)
  Receive Date: 20110707
  Receipt Date: 20110628
  Transmission Date: 20111222
  Serious: Yes (Hospitalization, Other)
  Sender: FDA-Public Use
  Company Number: PHHY2011GB56982

PATIENT
  Age: 64 Year
  Sex: Male

DRUGS (1)
  1. DICLOFENAC SODIUM [Suspect]
     Indication: PAIN
     Dosage: UNK

REACTIONS (12)
  - DYSPNOEA [None]
  - DEHYDRATION [None]
  - CARDIAC FAILURE [None]
  - DILATATION ATRIAL [None]
  - DYSPNOEA PAROXYSMAL NOCTURNAL [None]
  - LYMPHOEDEMA [None]
  - ASCITES [None]
  - LEFT VENTRICULAR HYPERTROPHY [None]
  - PLEURAL EFFUSION [None]
  - ORTHOPNOEA [None]
  - TRICUSPID VALVE INCOMPETENCE [None]
  - CONSTIPATION [None]
